FAERS Safety Report 6723848-7 (Version None)
Quarter: 2010Q2

REPORT INFORMATION
  Report Type: 
  Country: None (occurrence: None)
  Receive Date: 20100513
  Receipt Date: 20100305
  Transmission Date: 20101027
  Serious: Yes (Hospitalization)
  Sender: FDA-Public Use
  Company Number: HK-ROCHE-669800

PATIENT
  Sex: Male
  Weight: 51.7 kg

DRUGS (6)
  1. BEVACIZUMAB [Suspect]
     Indication: NON-SMALL CELL LUNG CANCER
     Dosage: TEMPORARILY INTERRUPTED. FORM: IV INFUSION
     Route: 042
     Dates: start: 20090806, end: 20091112
  2. BEVACIZUMAB [Suspect]
     Route: 042
     Dates: start: 20091209
  3. GEMCITABINE HCL [Suspect]
     Indication: NON-SMALL CELL LUNG CANCER
     Dosage: FORM: IV INFUSION TEMPORARILY INTERRUPTED.
     Route: 042
     Dates: start: 20090806, end: 20091112
  4. GEMCITABINE HCL [Suspect]
     Route: 042
     Dates: start: 20091126
  5. CARBOPLATIN [Suspect]
     Dosage: TEMPORARILY INTERRUPTED. FORM: IV INFUSION
     Route: 042
     Dates: start: 20090806, end: 20091112
  6. CARBOPLATIN [Suspect]
     Route: 042
     Dates: start: 20091209

REACTIONS (1)
  - PALPITATIONS [None]
